FAERS Safety Report 12613597 (Version 1)
Quarter: 2016Q3

REPORT INFORMATION
  Report Type: Spontaneous
  Country: FR (occurrence: FR)
  Receive Date: 20160802
  Receipt Date: 20160802
  Transmission Date: 20161109
  Serious: Yes (Death)
  Sender: FDA-Public Use
  Company Number: FR-WATSON-2016-16861

PATIENT
  Age: 79 Year
  Sex: Male

DRUGS (6)
  1. ERLOTINIB [Interacting]
     Active Substance: ERLOTINIB
     Indication: SQUAMOUS CELL CARCINOMA
     Dosage: 150 MG, DAILY
     Route: 065
  2. CIPROFLOXACIN HYDROCHLORIDE (UNKNOWN) [Suspect]
     Active Substance: CIPROFLOXACIN HYDROCHLORIDE
     Indication: PRODUCT USED FOR UNKNOWN INDICATION
     Dosage: UNK
     Route: 065
  3. METHYLPREDNISOLONE (UNKNOWN) [Interacting]
     Active Substance: METHYLPREDNISOLONE
     Indication: VOMITING
     Dosage: 30 MG, DAILY
     Route: 065
  4. PREDNISOLONE (UNKNOWN) [Interacting]
     Active Substance: PREDNISOLONE
     Indication: PRODUCT USED FOR UNKNOWN INDICATION
     Dosage: 10 MG, DAILY
     Route: 065
  5. PREDNISOLONE (UNKNOWN) [Interacting]
     Active Substance: PREDNISOLONE
     Dosage: 20 MG, DAILY
     Route: 065
  6. PIPERACILLIN AND TAZOBACTAM [Concomitant]
     Active Substance: PIPERACILLIN SODIUM\TAZOBACTAM SODIUM
     Indication: PRODUCT USED FOR UNKNOWN INDICATION
     Dosage: UNK
     Route: 065

REACTIONS (3)
  - Gastrointestinal perforation [Fatal]
  - Drug interaction [Fatal]
  - Pneumoperitoneum [Fatal]
